FAERS Safety Report 6584389-3 (Version None)
Quarter: 2010Q1

REPORT INFORMATION
  Report Type: 
  Country: None (occurrence: None)
  Receive Date: 20100216
  Receipt Date: 20100204
  Transmission Date: 20100710
  Serious: No
  Sender: FDA-Public Use
  Company Number: US-ABBOTT-10P-163-0624182-00

PATIENT
  Sex: Female

DRUGS (2)
  1. SIMCOR [Suspect]
     Indication: DRUG USE FOR UNKNOWN INDICATION
     Dosage: 500/20MG AT BEDTIME
     Route: 048
  2. SIMCOR [Suspect]
     Dosage: 500/20MG AT BEDTIME
     Route: 048

REACTIONS (2)
  - FLUSHING [None]
  - PRURITUS [None]
